FAERS Safety Report 16862080 (Version 3)
Quarter: 2020Q4

REPORT INFORMATION
  Report Type: Spontaneous
  Country: US (occurrence: US)
  Receive Date: 20190927
  Receipt Date: 20201223
  Transmission Date: 20210113
  Serious: Yes (Hospitalization, Other)
  Sender: FDA-Public Use
  Company Number: US-GILEAD-2019-0429717

PATIENT
  Age: 38 Year
  Sex: Male
  Weight: 62.59 kg

DRUGS (34)
  1. AZITHROMYCIN [AZITHROMYCIN MONOHYDRATE] [Concomitant]
  2. SPIRONOLACTON [Concomitant]
     Active Substance: SPIRONOLACTONE
  3. CIPROFLOXACIN. [Concomitant]
     Active Substance: CIPROFLOXACIN
  4. EPIVIR [Concomitant]
     Active Substance: LAMIVUDINE
  5. ZOFRAN [Concomitant]
     Active Substance: ONDANSETRON HYDROCHLORIDE
  6. VALCYTE [Concomitant]
     Active Substance: VALGANCICLOVIR HYDROCHLORIDE
  7. EPZICOM [Concomitant]
     Active Substance: ABACAVIR SULFATE\LAMIVUDINE
  8. TIVICAY [Concomitant]
     Active Substance: DOLUTEGRAVIR SODIUM
  9. ELIQUIS [Concomitant]
     Active Substance: APIXABAN
  10. RIFAMPIN. [Concomitant]
     Active Substance: RIFAMPIN
  11. TRAMADOL. [Concomitant]
     Active Substance: TRAMADOL
  12. FUROSEMIDE. [Concomitant]
     Active Substance: FUROSEMIDE
  13. ATRIPLA [Suspect]
     Active Substance: EFAVIRENZ\EMTRICITABINE\TENOFOVIR DISOPROXIL FUMARATE
     Indication: HIV INFECTION
     Dosage: UNK
     Route: 048
     Dates: start: 2013
  14. FERROUS SULFATE. [Concomitant]
     Active Substance: FERROUS SULFATE
  15. POLYETHYLENE GLYCOL [MACROGOL] [Concomitant]
     Active Substance: POLYETHYLENE GLYCOLS
  16. PREDNISOL [PREDNISOLONE] [Concomitant]
  17. STRIBILD [Suspect]
     Active Substance: COBICISTAT\ELVITEGRAVIR\EMTRICITABINE\TENOFOVIR DISOPROXIL FUMARATE
     Indication: HIV INFECTION
     Dosage: UNK
     Route: 048
     Dates: start: 2013
  18. FLUCONAZOLE. [Concomitant]
     Active Substance: FLUCONAZOLE
  19. ONDANSETRON [Concomitant]
     Active Substance: ONDANSETRON
  20. PANTOPRAZOLE [Concomitant]
     Active Substance: PANTOPRAZOLE
  21. RIFABUTIN. [Concomitant]
     Active Substance: RIFABUTIN
  22. TRUVADA [Suspect]
     Active Substance: EMTRICITABINE\TENOFOVIR DISOPROXIL FUMARATE
     Indication: HIV INFECTION
     Dosage: UNK
     Route: 048
     Dates: start: 20130101
  23. AMIKACIN. [Concomitant]
     Active Substance: AMIKACIN
  24. ETHAMBUTOL [Concomitant]
     Active Substance: ETHAMBUTOL HYDROCHLORIDE
  25. ENOXAPARIN [Concomitant]
     Active Substance: ENOXAPARIN
  26. AMBIEN [Concomitant]
     Active Substance: ZOLPIDEM TARTRATE
  27. XARELTO [Concomitant]
     Active Substance: RIVAROXABAN
  28. CLARITHROMYCIN. [Concomitant]
     Active Substance: CLARITHROMYCIN
  29. SODIUM CHLORIDE. [Concomitant]
     Active Substance: SODIUM CHLORIDE
  30. SUCRALFATE. [Concomitant]
     Active Substance: SUCRALFATE
  31. ATRIPLA [Suspect]
     Active Substance: EFAVIRENZ\EMTRICITABINE\TENOFOVIR DISOPROXIL FUMARATE
     Dosage: UNK
     Route: 065
     Dates: start: 20140214
  32. STRIBILD [Suspect]
     Active Substance: COBICISTAT\ELVITEGRAVIR\EMTRICITABINE\TENOFOVIR DISOPROXIL FUMARATE
     Dosage: 300 MG
     Route: 065
     Dates: start: 201405
  33. DAPSONE. [Concomitant]
     Active Substance: DAPSONE
  34. FOLIC ACID. [Concomitant]
     Active Substance: FOLIC ACID

REACTIONS (18)
  - Renal tubular necrosis [Not Recovered/Not Resolved]
  - Economic problem [Not Recovered/Not Resolved]
  - Renal failure [Not Recovered/Not Resolved]
  - Anxiety [Not Recovered/Not Resolved]
  - Renal impairment [Not Recovered/Not Resolved]
  - Emotional distress [Not Recovered/Not Resolved]
  - Lethargy [Not Recovered/Not Resolved]
  - Gait inability [Recovered/Resolved]
  - Anhedonia [Not Recovered/Not Resolved]
  - Bone density decreased [Not Recovered/Not Resolved]
  - Pain [Not Recovered/Not Resolved]
  - Chronic kidney disease [Not Recovered/Not Resolved]
  - Blindness transient [Unknown]
  - Acute kidney injury [Not Recovered/Not Resolved]
  - Loss of personal independence in daily activities [Not Recovered/Not Resolved]
  - Quality of life decreased [Not Recovered/Not Resolved]
  - Depressed mood [Not Recovered/Not Resolved]
  - Depression [Not Recovered/Not Resolved]

NARRATIVE: CASE EVENT DATE: 201503
